FAERS Safety Report 18099332 (Version 1)
Quarter: 2020Q3

REPORT INFORMATION
  Report Type: Spontaneous
  Country: US (occurrence: US)
  Receive Date: 20200731
  Receipt Date: 20200731
  Transmission Date: 20201103
  Serious: No
  Sender: FDA-Public Use
  Company Number: None

PATIENT
  Age: 31 Year
  Sex: Female
  Weight: 67.5 kg

DRUGS (1)
  1. MODESA INSTANT HAND SANITIZER MOISTURIZERS AND VITAMIN E [Suspect]
     Active Substance: ALCOHOL
     Indication: INFECTION PROPHYLAXIS
     Dosage: ?          QUANTITY:2 OUNCE(S);?
     Route: 061
     Dates: start: 20200701, end: 20200730

REACTIONS (5)
  - Nausea [None]
  - Abdominal pain upper [None]
  - Illness [None]
  - Vision blurred [None]
  - Vomiting [None]

NARRATIVE: CASE EVENT DATE: 20200715
